FAERS Safety Report 6584256-5 (Version None)
Quarter: 2010Q1

REPORT INFORMATION
  Report Type: 
  Country: None (occurrence: None)
  Receive Date: 20100213
  Receipt Date: 20100213
  Transmission Date: 20100710
  Serious: Yes (Hospitalization)
  Sender: FDA-Public Use
  Company Number: None

PATIENT
  Age: 61 Year
  Sex: Female
  Weight: 82.6 kg

DRUGS (18)
  1. DAPTOMYCIN [Suspect]
     Indication: BACTERAEMIA
     Dosage: 6 MG/KG DAILY IV
     Route: 042
     Dates: start: 20091008, end: 20091014
  2. DAPTOMYCIN [Suspect]
     Indication: DRUG HYPERSENSITIVITY
     Dosage: 6 MG/KG DAILY IV
     Route: 042
     Dates: start: 20091008, end: 20091014
  3. DAPTOMYCIN [Suspect]
     Indication: BACTERAEMIA
     Dosage: 10 MG/KG DAILY IV
     Route: 042
     Dates: start: 20091014, end: 20091019
  4. REGULAR INSULIN [Concomitant]
  5. ESOMEPRAZOLE [Concomitant]
  6. ERGOCALCIFEROL [Concomitant]
  7. ESTRADIOL [Concomitant]
  8. SERTRALINE HCL [Concomitant]
  9. MULTIPLE VITAMIN [Concomitant]
  10. PANCRELIPASE [Concomitant]
  11. URSODIOL [Concomitant]
  12. MIRALAX [Concomitant]
  13. DOCUSATE SODIUM [Concomitant]
  14. ENOXAPARIN SODIUM [Concomitant]
  15. SUCRALFATE [Concomitant]
  16. FLUCONAZOLE [Concomitant]
  17. RIFAMPIN [Concomitant]
  18. POTASSIUM [Concomitant]

REACTIONS (2)
  - BLOOD CREATINE PHOSPHOKINASE INCREASED [None]
  - MYALGIA [None]
